FAERS Safety Report 9484076 (Version 2)
Quarter: 2013Q3

REPORT INFORMATION
  Report Type: Spontaneous
  Country: CA (occurrence: CA)
  Receive Date: 20130828
  Receipt Date: 20130828
  Transmission Date: 20140515
  Serious: Yes (Other)
  Sender: FDA-Public Use
  Company Number: CA-AMGEN-KDL344729

PATIENT
  Age: 13 Year
  Sex: Female

DRUGS (1)
  1. ENBREL [Suspect]
     Indication: JUVENILE IDIOPATHIC ARTHRITIS
     Dosage: UNK UNK, QWK
     Route: 065
     Dates: start: 20090317

REACTIONS (8)
  - Uveitis [Unknown]
  - Blindness [Unknown]
  - Pupils unequal [Unknown]
  - Tinnitus [Unknown]
  - Visual impairment [Unknown]
  - Myopia [Unknown]
  - Lymphadenopathy [Not Recovered/Not Resolved]
  - Headache [Unknown]
